FAERS Safety Report 8692361 (Version 3)
Quarter: 2012Q4

REPORT INFORMATION
  Report Type: 
  Country: US (occurrence: US)
  Receive Date: 20120730
  Receipt Date: 20120830
  Transmission Date: 20130627
  Serious: Yes (Hospitalization, Other)
  Sender: FDA-Public Use
  Company Number: US-PFIZER INC-2012180343

PATIENT
  Age: 48 Year
  Sex: Male
  Weight: 70.3 kg

DRUGS (2)
  1. ACCURETIC [Suspect]
     Indication: HYPERTENSION
     Dosage: quinapril HCl 10 mg/ hydrochlorothiazide 12.5 mg, daily
     Route: 048
  2. ACCURETIC [Suspect]
     Indication: HYPERTENSION

REACTIONS (3)
  - Spinal cord disorder [Unknown]
  - Pain [Unknown]
  - Cervical cord compression [Unknown]
